FAERS Safety Report 13828332 (Version 2)
Quarter: 2017Q3

REPORT INFORMATION
  Report Type: Spontaneous
  Country: US (occurrence: US)
  Receive Date: 20170803
  Receipt Date: 20170829
  Transmission Date: 20171127
  Serious: No
  Sender: FDA-Public Use
  Company Number: US-PFIZER INC-2017330426

PATIENT
  Age: 69 Year
  Sex: Female

DRUGS (8)
  1. GLIMEPIRIDE. [Suspect]
     Active Substance: GLIMEPIRIDE
     Dosage: UNK
  2. AMOXICILLIN. [Suspect]
     Active Substance: AMOXICILLIN
     Dosage: UNK
  3. LEVOFLOXACIN. [Suspect]
     Active Substance: LEVOFLOXACIN
     Dosage: UNK
  4. CODEINE [Suspect]
     Active Substance: CODEINE
     Dosage: UNK
  5. METFORMIN [Suspect]
     Active Substance: METFORMIN HYDROCHLORIDE
     Dosage: UNK
  6. NAPROXEN. [Suspect]
     Active Substance: NAPROXEN
     Dosage: UNK
  7. PIOGLITAZONE. [Suspect]
     Active Substance: PIOGLITAZONE
     Dosage: UNK
  8. OXYCODONE [Suspect]
     Active Substance: OXYCODONE
     Dosage: UNK

REACTIONS (1)
  - Drug hypersensitivity [Unknown]
